FAERS Safety Report 6460037-8 (Version None)
Quarter: 2009Q4

REPORT INFORMATION
  Report Type: 
  Country: None (occurrence: None)
  Receive Date: 20091129
  Receipt Date: 20091118
  Transmission Date: 20100525
  Serious: Yes (Hospitalization, Other)
  Sender: FDA-Public Use
  Company Number: PHHO2009PL13006

PATIENT
  Sex: Male
  Weight: 85 kg

DRUGS (4)
  1. ALISKIREN ALI+TAB [Suspect]
     Indication: ACUTE MYOCARDIAL INFARCTION
     Dosage: 150 MG
     Route: 048
     Dates: start: 20080908, end: 20091020
  2. ALISKIREN ALI+TAB [Suspect]
     Dosage: NO TREATMENT
     Dates: start: 20091021, end: 20091021
  3. ALISKIREN ALI+TAB [Suspect]
     Dosage: 150 MG
     Route: 048
     Dates: start: 20091022
  4. BISOPROLOL [Concomitant]
     Indication: CARDIAC FAILURE
     Dosage: UNK

REACTIONS (7)
  - DEVICE MALFUNCTION [None]
  - HYPERKALAEMIA [None]
  - HYPOTENSION [None]
  - IMPLANTABLE DEFIBRILLATOR INSERTION [None]
  - PULMONARY CONGESTION [None]
  - SINUS BRADYCARDIA [None]
  - SYNCOPE [None]
